FAERS Safety Report 11309838 (Version 1)
Quarter: 2015Q3

REPORT INFORMATION
  Report Type: Spontaneous
  Country: US (occurrence: US)
  Receive Date: 20150724
  Receipt Date: 20150724
  Transmission Date: 20151125
  Serious: No
  Sender: FDA-Public Use
  Company Number: US-009507513-1506USA013399

PATIENT
  Age: 61 Year
  Sex: Female

DRUGS (2)
  1. INTERFERON ALFA-2B [Suspect]
     Active Substance: INTERFERON ALFA-2B
     Dosage: 10 MILLION UNITS/M2
  2. INTERFERON ALFA-2B [Suspect]
     Active Substance: INTERFERON ALFA-2B
     Dosage: 20 MILLION UNITS/M2, QD FOR 5 DAYS FOR 4 CONSECUTIVE WEEKS
     Route: 042

REACTIONS (3)
  - Weight decreased [Unknown]
  - Depression [Unknown]
  - Nausea [Unknown]
